FAERS Safety Report 9854176 (Version 1)
Quarter: 2014Q1

REPORT INFORMATION
  Report Type: Spontaneous
  Country: CA (occurrence: CA)
  Receive Date: 20140130
  Receipt Date: 20140130
  Transmission Date: 20141002
  Serious: Yes (Hospitalization, Other)
  Sender: FDA-Public Use
  Company Number: CA-AMGEN-CANSP2014005659

PATIENT
  Age: 78 Year
  Sex: Female

DRUGS (4)
  1. ENBREL [Suspect]
     Indication: RHEUMATOID ARTHRITIS
     Dosage: 50 MG, UNK
     Route: 065
     Dates: start: 20131206
  2. INSULIN [Concomitant]
     Dosage: UNK UNK, BID
  3. LIPITOR [Concomitant]
     Dosage: UNK
  4. WARFARIN [Concomitant]
     Dosage: UNK

REACTIONS (4)
  - Pleural effusion [Recovering/Resolving]
  - Cough [Recovering/Resolving]
  - Immune system disorder [Recovering/Resolving]
  - Hunger [Recovering/Resolving]
